FAERS Safety Report 10143680 (Version 1)
Quarter: 2014Q2

REPORT INFORMATION
  Report Type: Spontaneous
  Country: US (occurrence: US)
  Receive Date: 20140430
  Receipt Date: 20140430
  Transmission Date: 20141212
  Serious: No
  Sender: FDA-Public Use
  Company Number: US-PFIZER INC-2014118654

PATIENT
  Age: 73 Year
  Sex: Female

DRUGS (3)
  1. LYRICA [Suspect]
     Indication: ARTHRITIS
     Dosage: 75 MG, DAILY
     Dates: start: 2014
  2. LYRICA [Suspect]
     Indication: FIBROMYALGIA
     Dosage: 75 MG, 2X/DAY
     Dates: start: 2014
  3. LYRICA [Suspect]
     Dosage: 75 MG, UNK

REACTIONS (2)
  - Somnolence [Unknown]
  - Fatigue [Unknown]
